FAERS Safety Report 9754820 (Version 1)
Quarter: 2013Q4

REPORT INFORMATION
  Report Type: Spontaneous
  Country: US (occurrence: US)
  Receive Date: 20131213
  Receipt Date: 20131213
  Transmission Date: 20140711
  Serious: No
  Sender: FDA-Public Use
  Company Number: US-GLAXOSMITHKLINE-A1006994A

PATIENT
  Age: 58 Year
  Sex: Female

DRUGS (1)
  1. NICODERM CQ 21MG [Suspect]
     Indication: EX-TOBACCO USER

REACTIONS (4)
  - Malaise [Unknown]
  - Gastric disorder [Unknown]
  - Vomiting [Unknown]
  - Ill-defined disorder [Unknown]
